FAERS Safety Report 7903133-8 (Version None)
Quarter: 2011Q4

REPORT INFORMATION
  Report Type: 
  Country: None (occurrence: None)
  Receive Date: 20111109
  Receipt Date: 20111028
  Transmission Date: 20120403
  Serious: Yes (Hospitalization)
  Sender: FDA-Public Use
  Company Number: DE-ELI_LILLY_AND_COMPANY-DE201110008071

PATIENT
  Age: 73 Year
  Sex: Female

DRUGS (7)
  1. FELODIPINE [Concomitant]
     Dosage: 5 MG, EACH MORNING
  2. MORPHINE [Concomitant]
     Indication: SPINAL FRACTURE
  3. SIMVASTATIN [Concomitant]
     Dosage: UNK, EACH EVENING
  4. ACETYLSALICYLIC ACID SRT [Concomitant]
     Dosage: 1 DF, QD
  5. PULMICORT [Concomitant]
     Dosage: UNK, EACH MORNING
  6. FORTEO [Suspect]
     Indication: OSTEOPOROSIS
     Dosage: UNK, QD
     Route: 058
     Dates: start: 20110420, end: 20110101
  7. FORTEO [Suspect]
     Dosage: UNK, QD
     Route: 058
     Dates: start: 20110914, end: 20111001

REACTIONS (3)
  - SPINAL OPERATION [None]
  - DIZZINESS [None]
  - INTENTIONAL DRUG MISUSE [None]
